FAERS Safety Report 9381958 (Version 10)
Quarter: 2014Q4

REPORT INFORMATION
  Report Type: Report from Study
  Country: CA (occurrence: CA)
  Receive Date: 20130703
  Receipt Date: 20141030
  Transmission Date: 20150529
  Serious: Yes (Death, Hospitalization, Other)
  Sender: FDA-Public Use
  Company Number: CA-INCYTE CORPORATION-2012IN002322

PATIENT
  Age: 79 Year
  Sex: Male

DRUGS (5)
  1. WARFARIN [Concomitant]
     Active Substance: WARFARIN
     Indication: PRODUCT USED FOR UNKNOWN INDICATION
     Dosage: UNK UNK, UNK
  2. JAKAFI [Suspect]
     Active Substance: RUXOLITINIB
     Indication: MYELOFIBROSIS
     Dosage: 20 MG, BID
     Route: 048
     Dates: start: 20120804
  3. JAKAFI [Suspect]
     Active Substance: RUXOLITINIB
     Dosage: 10 MG, BID
     Route: 048
  4. JAKAFI [Suspect]
     Active Substance: RUXOLITINIB
     Dosage: 15 MG, BID
     Route: 048
  5. JAKAFI [Suspect]
     Active Substance: RUXOLITINIB
     Dosage: 20 MG, BID
     Route: 048

REACTIONS (18)
  - Localised infection [Recovered/Resolved]
  - Decreased appetite [Unknown]
  - Osteomyelitis [Not Recovered/Not Resolved]
  - Red blood cell count decreased [Unknown]
  - Puncture site abscess [Unknown]
  - Disease complication [Unknown]
  - Fatigue [Unknown]
  - Dry mouth [Unknown]
  - Herpes zoster [Unknown]
  - Infected cyst [Unknown]
  - Sepsis [Unknown]
  - Meningitis [Unknown]
  - Depression [Unknown]
  - Haemoglobin decreased [Unknown]
  - Death [Fatal]
  - Dyspnoea exertional [Unknown]
  - Blood test abnormal [Unknown]
  - Dyspnoea [Unknown]

NARRATIVE: CASE EVENT DATE: 2012
